FAERS Safety Report 18054192 (Version 1)
Quarter: 2020Q3

REPORT INFORMATION
  Report Type: Spontaneous
  Country: US (occurrence: US)
  Receive Date: 20200722
  Receipt Date: 20200722
  Transmission Date: 20201103
  Serious: No
  Sender: FDA-Public Use
  Company Number: US-PFIZER INC-2020277737

PATIENT
  Age: 71 Year
  Sex: Female
  Weight: 75.75 kg

DRUGS (3)
  1. ESTRING [Suspect]
     Active Substance: ESTRADIOL
     Dosage: 1 DF, EVERY 3 MONTHS (INSERTED VAGINALLY EVERY 3 MONTHS)
     Route: 067
     Dates: start: 202001
  2. SYNTHROID [Concomitant]
     Active Substance: LEVOTHYROXINE SODIUM
     Indication: HYPOTHYROIDISM
     Dosage: 0.88 MG, 1X/DAY (0.88MG, TABLET, BY MOUTH, ONCE DAILY)
     Route: 048
  3. ESTRING [Suspect]
     Active Substance: ESTRADIOL
     Indication: VULVOVAGINAL DRYNESS
     Dosage: 1 DF, EVERY 3 MONTHS (INSERTED VAGINALLY EVERY 3 MONTHS)
     Route: 067
     Dates: end: 201912

REACTIONS (1)
  - Benign breast neoplasm [Unknown]

NARRATIVE: CASE EVENT DATE: 2019
